FAERS Safety Report 9468382 (Version 2)
Quarter: 2013Q3

REPORT INFORMATION
  Report Type: Report from Study
  Country: JP (occurrence: JP)
  Receive Date: 20130821
  Receipt Date: 20130924
  Transmission Date: 20140515
  Serious: Yes (Other)
  Sender: FDA-Public Use
  Company Number: JP-GILEAD-2013-0081665

PATIENT
  Age: 59 Year
  Sex: Female

DRUGS (22)
  1. EMTRICITABINE/TENOFOVIR DISOPROXIL FUMARATE [Suspect]
     Indication: HIV INFECTION
     Dosage: 1 DF, QD
     Route: 048
     Dates: start: 20110614
  2. NORVIR [Suspect]
     Indication: HIV INFECTION
     Dosage: 100 MG, QD
     Route: 048
     Dates: start: 20110614, end: 20110815
  3. PREZISTA [Suspect]
     Indication: HIV INFECTION
     Dosage: 800 MG, QD
     Route: 048
     Dates: start: 20110614, end: 20110815
  4. RALTEGRAVIR [Suspect]
     Indication: HIV INFECTION
     Dosage: UNK
     Dates: start: 20110816
  5. VFEND [Suspect]
     Indication: ASPERGILLUS TEST POSITIVE
     Dosage: 200 MG, BID
     Route: 048
     Dates: start: 20110816, end: 20120911
  6. PREDNISOLONE [Suspect]
     Indication: DRUG ERUPTION
     Dosage: 20 MG, QD
     Route: 048
     Dates: start: 20110804, end: 20110824
  7. PREDNISOLONE [Suspect]
     Dosage: 5 UNK, QD
     Route: 048
     Dates: start: 20110818, end: 20110824
  8. LANSOPRAZOLE [Concomitant]
     Indication: PRODUCT USED FOR UNKNOWN INDICATION
     Dosage: UNK
     Dates: start: 20110614
  9. TRANSAMIN [Concomitant]
     Indication: PRODUCT USED FOR UNKNOWN INDICATION
     Dosage: UNK
     Dates: start: 20110627, end: 20110814
  10. ITRIZOLE [Concomitant]
     Indication: PRODUCT USED FOR UNKNOWN INDICATION
     Dosage: UNK
     Dates: start: 20110711, end: 20110815
  11. ITRIZOLE [Concomitant]
     Dosage: UNK
     Dates: start: 20110912, end: 20111103
  12. ITRIZOLE [Concomitant]
     Dosage: UNK
     Dates: start: 20120421, end: 20121115
  13. BAKTAR [Concomitant]
     Indication: PRODUCT USED FOR UNKNOWN INDICATION
     Dosage: UNK
     Dates: start: 20110808, end: 20111012
  14. VALIXA [Concomitant]
     Indication: PRODUCT USED FOR UNKNOWN INDICATION
     Dosage: UNK
     Dates: start: 20110818, end: 20110822
  15. FLORID                             /00310801/ [Concomitant]
     Indication: PRODUCT USED FOR UNKNOWN INDICATION
     Dosage: UNK
     Dates: start: 20110818, end: 20110828
  16. URSO                               /00465701/ [Concomitant]
     Indication: PRODUCT USED FOR UNKNOWN INDICATION
     Dosage: UNK
     Dates: start: 20110902, end: 20110904
  17. URSO                               /00465701/ [Concomitant]
     Dosage: UNK
     Dates: start: 20110905, end: 20111103
  18. TRAMCET [Concomitant]
     Indication: PRODUCT USED FOR UNKNOWN INDICATION
     Dosage: UNK
     Dates: start: 20111024, end: 20111211
  19. TRAMCET [Concomitant]
     Dosage: UNK
     Dates: start: 20111212, end: 20120719
  20. TRAMCET [Concomitant]
     Dosage: UNK
     Dates: start: 20120720
  21. FOSAMAC [Concomitant]
     Indication: OSTEOPOROSIS
     Dosage: UNK
     Dates: start: 20111024
  22. LYRICA [Concomitant]
     Indication: PRODUCT USED FOR UNKNOWN INDICATION
     Dosage: UNK
     Dates: start: 20121005

REACTIONS (4)
  - Spinal compression fracture [Not Recovered/Not Resolved]
  - Feeling cold [Not Recovered/Not Resolved]
  - Back pain [Not Recovered/Not Resolved]
  - Pain [Not Recovered/Not Resolved]
